FAERS Safety Report 7112548-X (Version None)
Quarter: 2010Q4

REPORT INFORMATION
  Report Type: 
  Country: None (occurrence: None)
  Receive Date: 20101119
  Receipt Date: 20101109
  Transmission Date: 20110411
  Serious: Yes (Other)
  Sender: FDA-Public Use
  Company Number: US-ELI_LILLY_AND_COMPANY-US201011002564

PATIENT
  Sex: Female

DRUGS (25)
  1. GEMCITABINE HCL [Suspect]
     Indication: PANCREATIC CARCINOMA
  2. LEVAQUIN [Concomitant]
     Indication: RESPIRATORY TRACT INFECTION
     Route: 048
     Dates: start: 20100722
  3. CORTICOSTEROIDS, DERMATOLOGICAL PREPARATIONS [Concomitant]
     Indication: RASH
     Route: 061
     Dates: start: 20100601
  4. PREDNISONE [Concomitant]
     Indication: RASH
     Dates: start: 20100602
  5. COMPAZINE [Concomitant]
     Indication: NAUSEA
     Route: 048
     Dates: start: 20100528
  6. REGLAN [Concomitant]
     Indication: NAUSEA
     Route: 048
     Dates: start: 20100528
  7. ATIVAN [Concomitant]
     Indication: NAUSEA
     Route: 048
     Dates: start: 20100528
  8. ZOFRAN [Concomitant]
     Indication: NAUSEA
     Dates: start: 20100528
  9. BENADRYL [Concomitant]
     Route: 042
     Dates: start: 20100610
  10. RANITIDINE [Concomitant]
     Indication: PREMEDICATION
     Route: 042
     Dates: start: 20100610
  11. MEGACE [Concomitant]
     Indication: PROPHYLAXIS
     Route: 048
     Dates: start: 20100624
  12. MARINOL [Concomitant]
     Indication: NAUSEA
     Route: 048
     Dates: start: 20100624
  13. CREON [Concomitant]
     Indication: PANCREATIC ENZYMES
     Route: 048
     Dates: start: 20100701
  14. PROTONIX [Concomitant]
     Indication: ABDOMINAL DISTENSION
     Dosage: UNK, UNK
     Route: 048
     Dates: start: 20100624
  15. FLOVENT [Concomitant]
     Indication: ASTHMA
     Route: 055
  16. ALBUTEROL [Concomitant]
     Indication: ASTHMA
     Route: 055
  17. MULTI-VITAMINS [Concomitant]
     Indication: VITAMIN SUPPLEMENTATION
     Route: 048
  18. DOCUSATE [Concomitant]
     Indication: CONSTIPATION
     Route: 048
     Dates: start: 20100603
  19. BISACODYL [Concomitant]
     Indication: CONSTIPATION
     Route: 054
     Dates: start: 20100603
  20. AZITHROMYCIN [Concomitant]
     Indication: RESPIRATORY TRACT INFECTION
     Route: 048
     Dates: start: 20100722
  21. PERCOCET [Concomitant]
     Indication: PAIN
     Route: 048
     Dates: start: 20100722
  22. GLUCAGON [Concomitant]
     Dates: start: 20100715
  23. ONDANSETRON [Concomitant]
     Indication: NAUSEA
     Route: 042
     Dates: start: 20100720
  24. LEVOTHYROXINE SODIUM [Concomitant]
     Indication: HYPOTHYROIDISM
     Route: 048
  25. VITAMIN D [Concomitant]
     Indication: VITAMIN SUPPLEMENTATION
     Route: 048

REACTIONS (1)
  - GASTROENTERITIS [None]
